FAERS Safety Report 12386563 (Version 1)
Quarter: 2016Q2

REPORT INFORMATION
  Report Type: Spontaneous
  Country: US (occurrence: US)
  Receive Date: 20160519
  Receipt Date: 20160519
  Transmission Date: 20160815
  Serious: Yes (Hospitalization, Other)
  Sender: FDA-Public Use
  Company Number: US-B.I. PHARMACEUTICALS,INC./RIDGEFIELD-2016-BI-31143BP

PATIENT
  Age: 49 Year
  Sex: Male

DRUGS (29)
  1. ADVAIR HFA [Suspect]
     Active Substance: FLUTICASONE PROPIONATE\SALMETEROL XINAFOATE
     Indication: ASTHMA
     Dosage: 2 PUF
     Route: 055
     Dates: start: 2007
  2. ADVAIR HFA [Suspect]
     Active Substance: FLUTICASONE PROPIONATE\SALMETEROL XINAFOATE
     Dosage: FORMULATION: INHALATION POWDER; STRENGTH: 250/50 MCG
     Route: 055
     Dates: start: 2010
  3. VENTOLIN [Suspect]
     Active Substance: ALBUTEROL SULFATE
     Indication: CHRONIC OBSTRUCTIVE PULMONARY DISEASE
     Dosage: FORMULATION: INHALER; DOSE PER APPLICATION: 90 MCG
     Route: 055
  4. VENTOLIN [Suspect]
     Active Substance: ALBUTEROL SULFATE
     Dosage: FORMULATION: INHALER; STRENGTH: 90 MCG
     Route: 055
  5. VENTOLIN [Suspect]
     Active Substance: ALBUTEROL SULFATE
     Dosage: FORMULATION: INHALER; STRENGTH: 90 MCG
     Route: 055
  6. VENTOLIN [Suspect]
     Active Substance: ALBUTEROL SULFATE
     Indication: ASTHMA
     Dosage: 3 PUF
     Route: 055
     Dates: start: 2003
  7. VENTOLIN [Suspect]
     Active Substance: ALBUTEROL SULFATE
     Dosage: FORMULATION: INHALER; STRENGTH: 90 MCG
     Route: 055
  8. NEXIUM [Concomitant]
     Active Substance: ESOMEPRAZOLE MAGNESIUM
     Indication: PRODUCT USED FOR UNKNOWN INDICATION
     Route: 065
  9. BUMETANIDE. [Concomitant]
     Active Substance: BUMETANIDE
     Indication: PRODUCT USED FOR UNKNOWN INDICATION
     Route: 065
  10. VENTOLIN [Suspect]
     Active Substance: ALBUTEROL SULFATE
     Dosage: FORMULATION: INHALER; STRENGTH: 90 MCG; DOSE PER APPLICATION: 2-3; PUFFS EVERY 4 HOURS; DAILY DOSE:
     Route: 055
     Dates: start: 20131015
  11. XYZAL [Concomitant]
     Active Substance: LEVOCETIRIZINE DIHYDROCHLORIDE
     Indication: PRODUCT USED FOR UNKNOWN INDICATION
     Route: 065
  12. AVELOX [Concomitant]
     Active Substance: MOXIFLOXACIN HYDROCHLORIDE
     Indication: PRODUCT USED FOR UNKNOWN INDICATION
     Route: 065
  13. ALBUTEROL. [Suspect]
     Active Substance: ALBUTEROL
     Indication: PRODUCT USED FOR UNKNOWN INDICATION
     Dosage: 4 ANZ
     Route: 065
     Dates: start: 2014
  14. ADDERALL [Concomitant]
     Active Substance: AMPHETAMINE ASPARTATE\AMPHETAMINE SULFATE\DEXTROAMPHETAMINE SACCHARATE\DEXTROAMPHETAMINE SULFATE
     Indication: NEOPLASM MALIGNANT
     Route: 065
  15. DEMEROL [Concomitant]
     Active Substance: MEPERIDINE HYDROCHLORIDE
     Indication: PRODUCT USED FOR UNKNOWN INDICATION
     Route: 065
  16. MOBIC [Concomitant]
     Active Substance: MELOXICAM
     Indication: PRODUCT USED FOR UNKNOWN INDICATION
     Route: 065
  17. ADVAIR HFA [Suspect]
     Active Substance: FLUTICASONE PROPIONATE\SALMETEROL XINAFOATE
     Indication: CHRONIC OBSTRUCTIVE PULMONARY DISEASE
     Dosage: FORMULATION: INHALATION POWDER; STRENGTH: 250/50 MCG
     Route: 055
  18. VENTOLIN [Suspect]
     Active Substance: ALBUTEROL SULFATE
     Dosage: FORMULATION: INHALER; STRENGTH: 90 MCG
     Route: 055
     Dates: start: 2005
  19. PHENERGAN [Concomitant]
     Active Substance: PROMETHAZINE HYDROCHLORIDE
     Indication: PRODUCT USED FOR UNKNOWN INDICATION
     Route: 065
  20. POTASSIUM CHLORIDE. [Concomitant]
     Active Substance: POTASSIUM CHLORIDE
     Indication: PRODUCT USED FOR UNKNOWN INDICATION
     Route: 065
  21. XANAX [Concomitant]
     Active Substance: ALPRAZOLAM
     Indication: PRODUCT USED FOR UNKNOWN INDICATION
     Route: 065
  22. ADVAIR HFA [Suspect]
     Active Substance: FLUTICASONE PROPIONATE\SALMETEROL XINAFOATE
     Dosage: FORMULATION: INHALATION POWDER; STRENGTH: 250/50 MCG
     Route: 055
  23. DOXYCYCLINE. [Concomitant]
     Active Substance: DOXYCYCLINE
     Indication: PRODUCT USED FOR UNKNOWN INDICATION
     Route: 065
  24. OXYCODONE HYDROCHLORIDE. [Concomitant]
     Active Substance: OXYCODONE HYDROCHLORIDE
     Indication: PRODUCT USED FOR UNKNOWN INDICATION
     Route: 065
  25. ATROVENT [Suspect]
     Active Substance: IPRATROPIUM BROMIDE
     Indication: PRODUCT USED FOR UNKNOWN INDICATION
     Dosage: 4 ANZ
     Route: 065
     Dates: start: 2014
  26. ADVAIR HFA [Suspect]
     Active Substance: FLUTICASONE PROPIONATE\SALMETEROL XINAFOATE
     Dosage: FORMULATION: INHALATION POWDER; STRENGTH: 250/50 MCG
     Route: 055
  27. ADVAIR HFA [Suspect]
     Active Substance: FLUTICASONE PROPIONATE\SALMETEROL XINAFOATE
     Dosage: 2 PUF
     Route: 055
  28. SYNTHROID [Concomitant]
     Active Substance: LEVOTHYROXINE SODIUM
     Indication: PRODUCT USED FOR UNKNOWN INDICATION
     Route: 065
  29. CYMBALTA [Concomitant]
     Active Substance: DULOXETINE HYDROCHLORIDE
     Indication: PRODUCT USED FOR UNKNOWN INDICATION
     Route: 065

REACTIONS (39)
  - Testicular mass [Unknown]
  - Blood testosterone abnormal [Unknown]
  - Bronchitis [Unknown]
  - Retching [Unknown]
  - Chronic obstructive pulmonary disease [Not Recovered/Not Resolved]
  - Testis cancer [Unknown]
  - Surgery [Unknown]
  - Drug ineffective [Unknown]
  - Asthma [Unknown]
  - Hormone level abnormal [Unknown]
  - Disability [Unknown]
  - Road traffic accident [Unknown]
  - Stress [Unknown]
  - Treatment noncompliance [Unknown]
  - Testicular neoplasm [Unknown]
  - Adverse drug reaction [Unknown]
  - Testicular swelling [Recovered/Resolved]
  - Inhalation therapy [Unknown]
  - Oedema peripheral [Unknown]
  - Overdose [Unknown]
  - Dyspnoea [Not Recovered/Not Resolved]
  - Throat lesion [Unknown]
  - Spinal osteoarthritis [Unknown]
  - Suture insertion [Not Recovered/Not Resolved]
  - Pharyngitis streptococcal [Unknown]
  - Wheezing [Unknown]
  - Pain [Not Recovered/Not Resolved]
  - Pneumonia [Not Recovered/Not Resolved]
  - Testicular malignant teratoma [Recovered/Resolved]
  - Hospitalisation [Unknown]
  - Orchidectomy [Unknown]
  - Abnormal behaviour [Unknown]
  - Productive cough [Unknown]
  - Osteoarthritis [Not Recovered/Not Resolved]
  - Peripheral swelling [Unknown]
  - Peripheral venous disease [Unknown]
  - Abasia [Recovered/Resolved]
  - Intervertebral disc protrusion [Unknown]
  - Biopsy tongue [Unknown]

NARRATIVE: CASE EVENT DATE: 2004
